FAERS Safety Report 23538201 (Version 1)
Quarter: 2024Q1

REPORT INFORMATION
  Report Type: Spontaneous
  Country: US (occurrence: US)
  Receive Date: 20240219
  Receipt Date: 20240219
  Transmission Date: 20240409
  Serious: No
  Sender: FDA-Public Use
  Company Number: US-SA-SAC20240212001387

PATIENT
  Sex: Male
  Weight: 88.9 kg

DRUGS (8)
  1. CERDELGA [Suspect]
     Active Substance: ELIGLUSTAT
     Indication: Gaucher^s disease
     Dosage: 84 MG, BID
     Route: 065
  2. FIBER LAX [Concomitant]
     Active Substance: CALCIUM POLYCARBOPHIL
  3. PSYLLIUM HUSKS [Concomitant]
     Active Substance: PSYLLIUM HUSK
  4. VITAMIN D3 [Concomitant]
     Active Substance: CHOLECALCIFEROL
  5. TADALAFIL [Concomitant]
     Active Substance: TADALAFIL
  6. CALCIUM CARBONATE [Concomitant]
     Active Substance: CALCIUM CARBONATE
  7. LACTOSE [Concomitant]
     Active Substance: LACTOSE
  8. ESCITALOPRAM OXALATE [Concomitant]
     Active Substance: ESCITALOPRAM OXALATE

REACTIONS (3)
  - Abdominal discomfort [Unknown]
  - Abdominal distension [Unknown]
  - Diarrhoea [Unknown]
